FAERS Safety Report 21249514 (Version 1)
Quarter: 2022Q3

REPORT INFORMATION
  Report Type: Spontaneous
  Country: US (occurrence: US)
  Receive Date: 20220824
  Receipt Date: 20220824
  Transmission Date: 20221026
  Serious: No
  Sender: FDA-Public Use
  Company Number: US-PFIZER INC-PV202200048341

PATIENT
  Age: 42 Year
  Sex: Male

DRUGS (4)
  1. EUCRISA [Suspect]
     Active Substance: CRISABOROLE
     Indication: Pruritus
     Dosage: CONTINUE TOPICALS, AS NEEDED (APPLY A SMALL AMOUNT TO HANDS QD AS NEEDED)
     Route: 061
  2. EUCRISA [Suspect]
     Active Substance: CRISABOROLE
     Indication: Inflammation
  3. EUCRISA [Suspect]
     Active Substance: CRISABOROLE
     Indication: Dermatitis atopic
  4. EUCRISA [Suspect]
     Active Substance: CRISABOROLE
     Indication: Hand dermatitis

REACTIONS (2)
  - Drug ineffective [Unknown]
  - Off label use [Unknown]
